FAERS Safety Report 7356045-5 (Version None)
Quarter: 2011Q1

REPORT INFORMATION
  Report Type: 
  Country: None (occurrence: None)
  Receive Date: 20110310
  Receipt Date: 20110310
  Transmission Date: 20110831
  Serious: Yes (Other)
  Sender: FDA-Public Use
  Company Number: None

PATIENT
  Age: 73 Year
  Sex: Female
  Weight: 54.4316 kg

DRUGS (1)
  1. SERTRALINE HYDROCHLORIDE [Suspect]
     Indication: DEPRESSION
     Dosage: 100 MG 1 TO 1 1/2 DAILY PO
     Route: 048
     Dates: start: 20091001, end: 20101201

REACTIONS (4)
  - TREMOR [None]
  - PARKINSONIAN GAIT [None]
  - MUSCLE SPASMS [None]
  - MASKED FACIES [None]
